FAERS Safety Report 9251050 (Version 4)
Quarter: 2014Q4

REPORT INFORMATION
  Report Type: Report from Study
  Country: FR (occurrence: FR)
  Receive Date: 20130424
  Receipt Date: 20141201
  Transmission Date: 20150529
  Serious: Yes (Other)
  Sender: FDA-Public Use
  Company Number: FR-BAYER-2013-024272

PATIENT
  Age: 71 Year
  Sex: Male

DRUGS (4)
  1. REGORAFENIB [Suspect]
     Active Substance: REGORAFENIB
     Indication: COLORECTAL CANCER METASTATIC
     Dosage: 160 MG, UNK
     Dates: start: 20130123, end: 20130415
  2. SEDATIF PC [Concomitant]
     Active Substance: VIBURNUM OPULUS BARK
     Indication: SLEEP DISORDER
     Dosage: 0.5 DF, BID
     Dates: start: 20130201, end: 20130302
  3. XANAX [Concomitant]
     Active Substance: ALPRAZOLAM
     Indication: SLEEP DISORDER
     Dosage: 1 DF, QD
     Dates: start: 20130205, end: 20130408
  4. MYOLASTAN [Concomitant]
     Active Substance: TETRAZEPAM
     Indication: MUSCULOSKELETAL STIFFNESS
     Dosage: DAILY DOSE 4 DF
     Dates: start: 20130201

REACTIONS (12)
  - Mucosal inflammation [Recovered/Resolved]
  - Weight decreased [None]
  - Musculoskeletal stiffness [Recovered/Resolved]
  - Dermatitis [Recovered/Resolved]
  - Constipation [Recovering/Resolving]
  - Seborrhoeic dermatitis [Recovered/Resolved]
  - Hyperbilirubinaemia [Recovered/Resolved]
  - General physical health deterioration [None]
  - Palmar-plantar erythrodysaesthesia syndrome [Recovered/Resolved]
  - Decreased appetite [Not Recovered/Not Resolved]
  - Palmar-plantar erythrodysaesthesia syndrome [Recovered/Resolved]
  - Asthenia [Not Recovered/Not Resolved]

NARRATIVE: CASE EVENT DATE: 20130125
